FAERS Safety Report 7701428-4 (Version None)
Quarter: 2011Q3

REPORT INFORMATION
  Report Type: 
  Country: None (occurrence: None)
  Receive Date: 20110822
  Receipt Date: 20110808
  Transmission Date: 20111222
  Serious: No
  Sender: FDA-Public Use
  Company Number: US-B.I. PHARMACEUTICALS,INC./RIDGEFIELD-2011-BP-19408BP

PATIENT
  Sex: Female

DRUGS (3)
  1. COMBIVENT [Suspect]
     Indication: CARDIAC FAILURE CONGESTIVE
     Dosage: 4 PUF
     Route: 055
     Dates: start: 20110804, end: 20110807
  2. CARDIZEM [Concomitant]
     Indication: CARDIAC FAILURE CONGESTIVE
  3. TOPROL-XL [Concomitant]
     Indication: CARDIAC FAILURE CONGESTIVE

REACTIONS (4)
  - NAUSEA [None]
  - CONSTIPATION [None]
  - JOINT SWELLING [None]
  - INSOMNIA [None]
